FAERS Safety Report 13327260 (Version 1)
Quarter: 2017Q1

REPORT INFORMATION
  Report Type: Spontaneous
  Country: US (occurrence: US)
  Receive Date: 20170313
  Receipt Date: 20170313
  Transmission Date: 20170428
  Serious: No
  Sender: FDA-Public Use
  Company Number: US-JNJFOC-20161210282

PATIENT

DRUGS (2)
  1. ROGAINE [Suspect]
     Active Substance: MINOXIDIL
     Indication: PRODUCT USED FOR UNKNOWN INDICATION
     Route: 061
     Dates: start: 20161109
  2. ROGAINE [Suspect]
     Active Substance: MINOXIDIL
     Route: 061

REACTIONS (6)
  - Alopecia [Unknown]
  - Pruritus [Recovered/Resolved]
  - Application site pain [Unknown]
  - Application site erythema [Unknown]
  - Dandruff [Recovered/Resolved]
  - Application site irritation [Unknown]
